FAERS Safety Report 8336998-9 (Version None)
Quarter: 2012Q2

REPORT INFORMATION
  Report Type: 
  Country: None (occurrence: None)
  Receive Date: 20120504
  Receipt Date: 20120426
  Transmission Date: 20120825
  Serious: Yes (Hospitalization)
  Sender: FDA-Public Use
  Company Number: FR-PFIZER INC-2012102012

PATIENT
  Age: 24 Year
  Sex: Male
  Weight: 54.2 kg

DRUGS (9)
  1. HYDROCORTISONE [Concomitant]
     Indication: BLOOD CORTICOTROPHIN ABNORMAL
     Dosage: UNK
     Route: 048
     Dates: start: 20000524
  2. SOMATROPIN [Suspect]
     Dosage: 0.4 MG, 1X/DAY
  3. SOMATROPIN [Suspect]
     Indication: HYPOPITUITARISM
     Dosage: 0.3 MG, 1X/DAY
     Dates: start: 20030901
  4. LEVOTHYROXINE SODIUM [Concomitant]
     Indication: PRIMARY HYPOTHYROIDISM
     Dosage: UNK
     Route: 048
     Dates: start: 20000524
  5. LEVOTHYROXINE SODIUM [Concomitant]
     Indication: BLOOD THYROID STIMULATING HORMONE DECREASED
  6. ANDROTARDYL [Concomitant]
     Indication: LUTEINISING HORMONE DEFICIENCY
  7. HEPT-A-MYL [Concomitant]
     Indication: CARDIOVASCULAR DISORDER
     Dosage: UNK
     Route: 048
     Dates: start: 20040913
  8. ANDROTARDYL [Concomitant]
     Indication: HYPOGONADISM MALE
  9. ANDROTARDYL [Concomitant]
     Indication: BLOOD FOLLICLE STIMULATING HORMONE ABNORMAL
     Dosage: UNK
     Dates: start: 20000524

REACTIONS (1)
  - HYPOGLYCAEMIA [None]
